APPROVED DRUG PRODUCT: INDOMETHACIN
Active Ingredient: INDOMETHACIN
Strength: 50MG
Dosage Form/Route: CAPSULE;ORAL
Application: A090403 | Product #002 | TE Code: AB
Applicant: ZYDUS LIFESCIENCES LTD
Approved: Nov 15, 2010 | RLD: No | RS: No | Type: RX